FAERS Safety Report 7095427-6 (Version None)
Quarter: 2010Q4

REPORT INFORMATION
  Report Type: 
  Country: None (occurrence: None)
  Receive Date: 20101111
  Receipt Date: 20101103
  Transmission Date: 20110411
  Serious: Yes (Hospitalization)
  Sender: FDA-Public Use
  Company Number: FR-BRISTOL-MYERS SQUIBB COMPANY-15170905

PATIENT
  Age: 55 Year
  Sex: Female
  Weight: 56 kg

DRUGS (4)
  1. CETUXIMAB [Suspect]
     Indication: HEAD AND NECK CANCER
     Dosage: 1 DF:400 UNIT NOS FORMULATION:5MG/ML RECENT INF:15JUN10
     Route: 042
     Dates: start: 20100615
  2. CISPLATIN [Suspect]
     Indication: HEAD AND NECK CANCER
     Dosage: RECENT INF:15JUN10
     Route: 042
     Dates: start: 20100615
  3. CILENGITIDE [Suspect]
     Indication: HEAD AND NECK CANCER
     Dosage: RECENT INF:18JUN10 NO OF INF:4
     Route: 042
     Dates: start: 20100615
  4. FLUOROURACIL [Suspect]
     Indication: HEAD AND NECK CANCER
     Dosage: DAY 1 TO 4 OF CYCLE RECENT INF:19JUN10
     Route: 042
     Dates: start: 20100615

REACTIONS (2)
  - DEHYDRATION [None]
  - HYPONATRAEMIA [None]
